FAERS Safety Report 17860391 (Version 1)
Quarter: 2020Q2

REPORT INFORMATION
  Report Type: Report from Study
  Country: US (occurrence: US)
  Receive Date: 20200604
  Receipt Date: 20200604
  Transmission Date: 20200714
  Serious: Yes (Hospitalization)
  Sender: FDA-Public Use
  Company Number: US-ROCHE-2347170

PATIENT
  Sex: Female

DRUGS (13)
  1. VITAMIN D3 [Concomitant]
     Active Substance: CHOLECALCIFEROL
  2. METOPROLOL SUCCINATE. [Concomitant]
     Active Substance: METOPROLOL SUCCINATE
  3. OCREVUS [Suspect]
     Active Substance: OCRELIZUMAB
     Indication: PRIMARY PROGRESSIVE MULTIPLE SCLEROSIS
     Dosage: HALF DOSE?DATE OF TREATMENT:26/JUN/2018, 21/DEC/2018 AND 21/JUN/2019
     Route: 042
     Dates: start: 20170612
  4. SUPER B COMPLEX [VITAMIN B COMPLEX] [Concomitant]
  5. FISH OIL [Concomitant]
     Active Substance: FISH OIL
  6. COENZYME Q10 [Concomitant]
     Active Substance: UBIDECARENONE
  7. OCREVUS [Suspect]
     Active Substance: OCRELIZUMAB
     Dosage: FULL DOSES;SUBSEQUENT DOSE,
     Route: 042
  8. SOLU-MEDROL [Concomitant]
     Active Substance: METHYLPREDNISOLONE SODIUM SUCCINATE
  9. SERTRALINE [Concomitant]
     Active Substance: SERTRALINE HYDROCHLORIDE
  10. LOSARTAN POTASSIUM. [Concomitant]
     Active Substance: LOSARTAN POTASSIUM
  11. TAURINE [Concomitant]
     Active Substance: TAURINE
  12. TOVIAZ [Concomitant]
     Active Substance: FESOTERODINE FUMARATE
  13. FLAX [Concomitant]

REACTIONS (3)
  - Multiple sclerosis [Unknown]
  - Alopecia [Unknown]
  - Influenza [Unknown]
